FAERS Safety Report 13377777 (Version 2)
Quarter: 2017Q4

REPORT INFORMATION
  Report Type: Spontaneous
  Country: IT (occurrence: IT)
  Receive Date: 20170328
  Receipt Date: 20171013
  Transmission Date: 20180320
  Serious: Yes (Death)
  Sender: FDA-Public Use
  Company Number: IT-JNJFOC-20170327979

PATIENT
  Age: 65 Year
  Sex: Female

DRUGS (7)
  1. YONDELIS [Suspect]
     Active Substance: TRABECTEDIN
     Indication: OVARIAN CANCER
     Route: 042
     Dates: start: 20170317, end: 20170317
  2. CAELYX [Suspect]
     Active Substance: DOXORUBICIN HYDROCHLORIDE
     Indication: OVARIAN CANCER
     Route: 042
     Dates: start: 20170317, end: 20170317
  3. METFORMIN HYDROCHLORIDE. [Concomitant]
     Active Substance: METFORMIN HYDROCHLORIDE
     Indication: PRODUCT USED FOR UNKNOWN INDICATION
     Route: 065
  4. MEGESTROL ACETATE. [Concomitant]
     Active Substance: MEGESTROL ACETATE
     Indication: PRODUCT USED FOR UNKNOWN INDICATION
     Route: 065
  5. EPOETIN ALFA [Concomitant]
     Active Substance: ERYTHROPOIETIN
     Indication: PRODUCT USED FOR UNKNOWN INDICATION
     Route: 065
  6. DELTACORTENE [Concomitant]
     Active Substance: PREDNISONE
     Indication: PRODUCT USED FOR UNKNOWN INDICATION
     Route: 065
  7. SIMVASTATIN. [Concomitant]
     Active Substance: SIMVASTATIN
     Indication: PRODUCT USED FOR UNKNOWN INDICATION
     Route: 048

REACTIONS (4)
  - Drug-induced liver injury [Fatal]
  - Diarrhoea [Fatal]
  - Nausea [Fatal]
  - Asthenia [Fatal]

NARRATIVE: CASE EVENT DATE: 20170319
